FAERS Safety Report 4535294-5 (Version None)
Quarter: 2004Q4

REPORT INFORMATION
  Report Type: 
  Country: None (occurrence: None)
  Receive Date: 20041214
  Receipt Date: 20040924
  Transmission Date: 20050328
  Serious: No
  Sender: FDA-Public Use
  Company Number: 2004237353US

PATIENT
  Age: 43 Year
  Sex: Female
  Weight: 47.6 kg

DRUGS (5)
  1. BEXTRA [Suspect]
     Indication: ARTHRITIS
     Dosage: 10 MG, QD, ORAL
     Route: 048
     Dates: start: 20040901
  2. ASPIRIN [Concomitant]
  3. GLUCOSAMINE W/CHONDROITIN SULFATES (MANGANESE) [Concomitant]
  4. CALCIUM GLUCONATE [Concomitant]
  5. MULTIVITAMINS (ERGOCALCIFEROL, RETINOL, PANTHENOL) [Concomitant]

REACTIONS (2)
  - DRUG ERUPTION [None]
  - RASH [None]
